FAERS Safety Report 4508932-0 (Version None)
Quarter: 2004Q4

REPORT INFORMATION
  Report Type: 
  Country: None (occurrence: None)
  Receive Date: 20041123
  Receipt Date: 20041026
  Transmission Date: 20050328
  Serious: Yes (Disabling)
  Sender: FDA-Public Use
  Company Number: JP-GLAXOSMITHKLINE-B0349717A

PATIENT
  Age: 72 Year
  Sex: Male
  Weight: 55 kg

DRUGS (1)
  1. VALTREX [Suspect]
     Indication: HERPES ZOSTER
     Dosage: 1000MG PER DAY
     Route: 048
     Dates: start: 20041022, end: 20041022

REACTIONS (10)
  - AFFECT LABILITY [None]
  - CONFUSIONAL STATE [None]
  - DYSKINESIA [None]
  - GAIT DISTURBANCE [None]
  - HALLUCINATION [None]
  - LOGORRHOEA [None]
  - MUSCLE TWITCHING [None]
  - PSYCHIATRIC SYMPTOM [None]
  - RENAL DISORDER [None]
  - SPEECH DISORDER [None]
